FAERS Safety Report 8064202-8 (Version None)
Quarter: 2011Q4

REPORT INFORMATION
  Report Type: 
  Country: None (occurrence: None)
  Receive Date: 20111221
  Receipt Date: 20110504
  Transmission Date: 20120403
  Serious: No
  Sender: FDA-Public Use
  Company Number: 2011S1000034

PATIENT
  Age: 53 Year
  Sex: Male
  Weight: 113.3993 kg

DRUGS (9)
  1. COLCHICINE [Concomitant]
  2. METHYLPREDNISOLONE [Concomitant]
  3. BENADRYL [Concomitant]
  4. HYDROCODONE [Concomitant]
  5. STEROID [Concomitant]
  6. KRYSTEXXA [Suspect]
     Indication: GOUT
     Dosage: X1
     Dates: start: 20110427, end: 20110427
  7. KRYSTEXXA [Suspect]
     Indication: GOUT
     Dosage: X1
     Dates: start: 20110328, end: 20110328
  8. KRYSTEXXA [Suspect]
     Indication: GOUT
     Dosage: X1
     Dates: start: 20110414, end: 20110414
  9. INDOCIN /0003801/ [Concomitant]

REACTIONS (2)
  - BACK PAIN [None]
  - ARTHRALGIA [None]
